FAERS Safety Report 7736092-1 (Version None)
Quarter: 2011Q3

REPORT INFORMATION
  Report Type: 
  Country: None (occurrence: None)
  Receive Date: 20110908
  Receipt Date: 20110818
  Transmission Date: 20111222
  Serious: Yes (Other)
  Sender: FDA-Public Use
  Company Number: US-JNJCP-30000068160

PATIENT
  Age: 75 Year
  Sex: Female
  Weight: 70 kg

DRUGS (1)
  1. NTG AGE SHIELD FACE LOTION SPF110 3OZ USA 086800870227 8680087022USA [Suspect]
     Dosage: NICKEL SIZE ONCE A DAY
     Route: 061
     Dates: start: 20110801, end: 20110804

REACTIONS (2)
  - APPLICATION SITE PAIN [None]
  - APPLICATION SITE RASH [None]
